FAERS Safety Report 18125372 (Version 2)
Quarter: 2020Q3

REPORT INFORMATION
  Report Type: Spontaneous
  Country: US (occurrence: US)
  Receive Date: 20200807
  Receipt Date: 20200831
  Transmission Date: 20201103
  Serious: No
  Sender: FDA-Public Use
  Company Number: US-TEVA-2020-US-1811345

PATIENT
  Age: 65 Year
  Sex: Female

DRUGS (1)
  1. BUDESONIDE TEVA [Suspect]
     Active Substance: BUDESONIDE
     Indication: NASAL IRRIGATION
     Dosage: INHALANT SUSPENSION DOSE: 1MG/2ML
     Route: 045
     Dates: start: 20200720, end: 20200721

REACTIONS (2)
  - Nasal discomfort [Recovered/Resolved]
  - Product use in unapproved indication [Unknown]

NARRATIVE: CASE EVENT DATE: 20200720
